FAERS Safety Report 10155839 (Version 1)
Quarter: 2014Q2

REPORT INFORMATION
  Report Type: Spontaneous
  Country: SE (occurrence: SE)
  Receive Date: 20140506
  Receipt Date: 20140506
  Transmission Date: 20141212
  Serious: Yes (Hospitalization)
  Sender: FDA-Public Use
  Company Number: SE-MERCK-1404SWE015461

PATIENT
  Age: 61 Year
  Sex: Female

DRUGS (14)
  1. EZETROL [Suspect]
     Dosage: UNK, PRN, 10 TABLETS DISSOLVED IN WATER FOR
     Route: 048
     Dates: start: 20140317, end: 20140321
  2. BETAPRED (BETAMETHASONE SODIUM PHOSPHATE) [Concomitant]
     Dosage: 10 TABLETS DISSOLVED IN WATER FOR ALLERGIC SWOLLEN TONGUE
  3. CANDESARTAN [Concomitant]
  4. CANODERM [Concomitant]
  5. FOLACIN [Concomitant]
  6. INSULATARD FLEXPEN [Concomitant]
     Dosage: SUSPENSION FOR INJECTION IN PRE-FILLED PEN
  7. METFORMIN MEDA [Concomitant]
  8. METOPROLOL RETARD [Concomitant]
  9. NAPROXEN [Concomitant]
  10. OMEPRAZOL ACTAVIS [Concomitant]
  11. PULMICORT TURBUHALER [Concomitant]
  12. SAROTEN [Concomitant]
  13. ALVEDON [Concomitant]
     Dosage: TABLET WITH MODIFIED RELEASE
  14. TAVEGYL [Concomitant]

REACTIONS (3)
  - Mouth swelling [Unknown]
  - Swollen tongue [Unknown]
  - Angioedema [Unknown]
